FAERS Safety Report 5264754-7 (Version None)
Quarter: 2007Q1

REPORT INFORMATION
  Report Type: 
  Country: None (occurrence: None)
  Receive Date: 20061124
  Receipt Date: 20050927
  Transmission Date: 20070707
  Serious: No
  Sender: FDA-Public Use
  Company Number: 2005UW14427

PATIENT
  Sex: Female

DRUGS (1)
  1. ATENOLOL [Suspect]

REACTIONS (1)
  - SYNCOPE [None]
